FAERS Safety Report 5660249-7 (Version None)
Quarter: 2008Q1

REPORT INFORMATION
  Report Type: 
  Country: None (occurrence: None)
  Receive Date: 20080212
  Receipt Date: 20070511
  Transmission Date: 20080703
  Serious: Yes (Life-Threatening, Hospitalization)
  Sender: FDA-Public Use
  Company Number: MC200700365

PATIENT
  Age: 74 Year
  Sex: Male

DRUGS (4)
  1. ANGIOMAX [Suspect]
     Indication: PERCUTANEOUS CORONARY INTERVENTION
     Dosage: 0.75 MG/KG, BOLUS, IV BOLUS; HR, INTRAVENOUS
     Route: 042
     Dates: start: 20070502, end: 20070502
  2. ANGIOMAX [Suspect]
     Indication: PERCUTANEOUS CORONARY INTERVENTION
     Dosage: 0.75 MG/KG, BOLUS, IV BOLUS; HR, INTRAVENOUS
     Route: 042
     Dates: start: 20070502
  3. CONTRAST MEDIA() [Suspect]
     Dates: start: 20070502
  4. PLAVIX [Concomitant]

REACTIONS (1)
  - ANAPHYLACTIC REACTION [None]
